FAERS Safety Report 24564591 (Version 2)
Quarter: 2024Q4

REPORT INFORMATION
  Report Type: Spontaneous
  Country: US (occurrence: US)
  Receive Date: 20241030
  Receipt Date: 20241105
  Transmission Date: 20250115
  Serious: No
  Sender: ROCHE
  Company Number: US-ROCHE-10000120117

PATIENT
  Sex: Female

DRUGS (1)
  1. OCREVUS [Suspect]
     Active Substance: OCRELIZUMAB
     Indication: Multiple sclerosis
     Dosage: LATEST SUSPECT DRUG ADMINISTRATION - 25-SEP-2024
     Route: 042
     Dates: start: 20240925

REACTIONS (1)
  - Alopecia [Not Recovered/Not Resolved]
